FAERS Safety Report 7893500-3 (Version None)
Quarter: 2011Q4

REPORT INFORMATION
  Report Type: 
  Country: None (occurrence: None)
  Receive Date: 20111104
  Receipt Date: 20111026
  Transmission Date: 20120403
  Serious: Yes (Hospitalization)
  Sender: FDA-Public Use
  Company Number: US-BRISTOL-MYERS SQUIBB COMPANY-16197220

PATIENT
  Age: 72 Year
  Sex: Female

DRUGS (11)
  1. ABACAVIR [Concomitant]
  2. LAMIVUDINE (EPIVIR HBV) [Concomitant]
  3. ZIDOVUDINE [Concomitant]
  4. NEXIUM [Concomitant]
  5. METOPROLOL TARTRATE [Concomitant]
  6. FENTANYL [Concomitant]
  7. INSULIN [Concomitant]
  8. REYATAZ [Suspect]
     Indication: HIV INFECTION
     Dosage: FORMULATION: OPENED CAPSULES.
  9. RITONAVIR [Concomitant]
  10. ETRAVIRINE [Concomitant]
  11. FLUCONAZOLE [Concomitant]

REACTIONS (1)
  - CANDIDURIA [None]
